FAERS Safety Report 16625051 (Version 1)
Quarter: 2019Q3

REPORT INFORMATION
  Report Type: Spontaneous
  Country: US (occurrence: US)
  Receive Date: 20190724
  Receipt Date: 20190724
  Transmission Date: 20191004
  Serious: Yes (Disabling, Other)
  Sender: FDA-Public Use
  Company Number: None

PATIENT
  Age: 78 Year
  Sex: Female
  Weight: 74.25 kg

DRUGS (8)
  1. INSULIN [Concomitant]
     Active Substance: INSULIN NOS
  2. VITAMIN B [Concomitant]
     Active Substance: VITAMIN B
  3. NOVOLOG [Concomitant]
     Active Substance: INSULIN ASPART
  4. NOVOLIN [Concomitant]
     Active Substance: INSULIN HUMAN
  5. REGULAR VITAMIN [Concomitant]
  6. MILK THISTLE [Concomitant]
     Active Substance: DIETARY SUPPLEMENT\HERBALS\MILK THISTLE
  7. DOTAREM [Suspect]
     Active Substance: GADOTERATE MEGLUMINE
     Indication: X-RAY WITH CONTRAST
     Dates: start: 20190718, end: 20190718
  8. MAGNESIUM [Concomitant]
     Active Substance: MAGNESIUM

REACTIONS (7)
  - Diarrhoea [None]
  - Cystitis [None]
  - Food poisoning [None]
  - Metal poisoning [None]
  - Flatulence [None]
  - Bladder pain [None]
  - Dysuria [None]

NARRATIVE: CASE EVENT DATE: 20190718
